FAERS Safety Report 15741899 (Version 2)
Quarter: 2019Q1

REPORT INFORMATION
  Report Type: Spontaneous
  Country: GB (occurrence: GB)
  Receive Date: 20181219
  Receipt Date: 20190220
  Transmission Date: 20190417
  Serious: Yes (Hospitalization)
  Sender: FDA-Public Use
  Company Number: GB-TEVA-2018-GB-987867

PATIENT
  Age: 82 Year
  Sex: Female

DRUGS (11)
  1. FLECAINIDE [Concomitant]
     Active Substance: FLECAINIDE
  2. ADCAL-D3 [Concomitant]
     Active Substance: CALCIUM CARBONATE\CHOLECALCIFEROL
  3. APIXABAN [Suspect]
     Active Substance: APIXABAN
     Indication: ANTICOAGULANT THERAPY
     Dosage: 10 MILLIGRAM DAILY;
     Route: 048
     Dates: end: 20181114
  4. FLUDROCORTISONE [Concomitant]
     Active Substance: FLUDROCORTISONE
  5. SIMVASTATIN. [Suspect]
     Active Substance: SIMVASTATIN
     Indication: HYPERCHOLESTEROLAEMIA
     Dosage: 40 MILLIGRAM DAILY; NIGHT
     Route: 048
     Dates: end: 20181114
  6. OMEPRAZOLE SODIUM [Concomitant]
     Active Substance: OMEPRAZOLE SODIUM
  7. FERROUS SULFATE. [Concomitant]
     Active Substance: FERROUS SULFATE
  8. PARACETAMOL [Concomitant]
     Active Substance: ACETAMINOPHEN
  9. NITROFURANTOIN. [Suspect]
     Active Substance: NITROFURANTOIN
     Indication: ANTIBIOTIC THERAPY
     Dosage: 100 MILLIGRAM DAILY;
     Route: 048
     Dates: end: 20181114
  10. ALENDRONIC ACID [Concomitant]
     Active Substance: ALENDRONIC ACID
  11. SERTRALINE [Concomitant]
     Active Substance: SERTRALINE HYDROCHLORIDE

REACTIONS (1)
  - Liver function test increased [Recovered/Resolved]

NARRATIVE: CASE EVENT DATE: 20181113
